FAERS Safety Report 11787142 (Version 1)
Quarter: 2015Q4

REPORT INFORMATION
  Report Type: Spontaneous
  Country: US (occurrence: US)
  Receive Date: 20151130
  Receipt Date: 20151130
  Transmission Date: 20160305
  Serious: Yes (Other)
  Sender: FDA-Public Use
  Company Number: US-SA-2015SA186875

PATIENT
  Age: 43 Year
  Sex: Male

DRUGS (1)
  1. LOVENOX [Suspect]
     Active Substance: ENOXAPARIN SODIUM
     Route: 065
     Dates: start: 2014

REACTIONS (4)
  - Blood pressure decreased [Unknown]
  - Amyotrophic lateral sclerosis [Unknown]
  - Anaemia [Not Recovered/Not Resolved]
  - Bedridden [Unknown]
